FAERS Safety Report 5648696-0 (Version None)
Quarter: 2008Q1

REPORT INFORMATION
  Report Type: 
  Country: None (occurrence: None)
  Receive Date: 20080304
  Receipt Date: 20080228
  Transmission Date: 20080703
  Serious: Yes (Other)
  Sender: FDA-Public Use
  Company Number: B0510788A

PATIENT
  Age: 75 Year
  Sex: Male

DRUGS (3)
  1. ZENTEL [Suspect]
     Indication: HEPATIC ECHINOCOCCIASIS
     Dosage: 400G PER DAY
     Route: 048
     Dates: start: 20061108, end: 20061230
  2. SPIRIDAZIDE [Concomitant]
  3. NIFEDIPINE [Concomitant]
     Dosage: 60MG PER DAY

REACTIONS (1)
  - LIVER DISORDER [None]
